FAERS Safety Report 10058391 (Version 2)
Quarter: 2014Q2

REPORT INFORMATION
  Report Type: Spontaneous
  Country: IT (occurrence: None)
  Receive Date: 20140402
  Receipt Date: 20140422
  Transmission Date: 20141212
  Serious: Yes (Other)
  Sender: FDA-Public Use
  Company Number: GTI002155

PATIENT
  Age: 73 Year
  Sex: Female
  Weight: 64 kg

DRUGS (3)
  1. PROLASTIN [Suspect]
     Indication: EMPHYSEMA
     Route: 042
     Dates: start: 20131021, end: 20131111
  2. TIOTROPIUM BROMIDE [Concomitant]
  3. SALMETEROL / FLUTICASONE [Concomitant]

REACTIONS (5)
  - Atrial fibrillation [None]
  - Chest discomfort [None]
  - Asthenia [None]
  - Hypertension [None]
  - Pulmonary function test decreased [None]
